FAERS Safety Report 10071987 (Version 1)
Quarter: 2014Q2

REPORT INFORMATION
  Report Type: Spontaneous
  Country: US (occurrence: None)
  Receive Date: 20140409
  Receipt Date: 20140409
  Transmission Date: 20141212
  Serious: Yes (Death)
  Sender: FDA-Public Use
  Company Number: 2014P1002764

PATIENT
  Age: 3 Year
  Sex: Female

DRUGS (3)
  1. METHYLPREDNISOLONE [Suspect]
     Indication: OBLITERATIVE BRONCHIOLITIS
  2. CEFUROXIME [Concomitant]
  3. BUDESONIDE [Concomitant]

REACTIONS (1)
  - Respiratory failure [None]
